FAERS Safety Report 6808341-5 (Version None)
Quarter: 2010Q2

REPORT INFORMATION
  Report Type: 
  Country: None (occurrence: None)
  Receive Date: 20100629
  Receipt Date: 20090617
  Transmission Date: 20101027
  Serious: No
  Sender: FDA-Public Use
  Company Number: US-PFIZER INC-2009199571

PATIENT
  Sex: Female
  Weight: 37.642 kg

DRUGS (2)
  1. ZYVOX [Suspect]
     Indication: INFECTION
     Dosage: 600 MG, 2X/DAY
     Route: 048
     Dates: start: 20090401, end: 20090401
  2. LORTAB [Concomitant]
     Indication: NEURALGIA
     Dosage: UNK

REACTIONS (3)
  - DYSPHAGIA [None]
  - ORAL CANDIDIASIS [None]
  - PARAESTHESIA [None]
